FAERS Safety Report 15590453 (Version 1)
Quarter: 2018Q4

REPORT INFORMATION
  Report Type: Spontaneous
  Country: US (occurrence: US)
  Receive Date: 20181106
  Receipt Date: 20181106
  Transmission Date: 20190205
  Serious: Yes (Other)
  Sender: FDA-Public Use
  Company Number: US-AMGEN-USASP2018155251

PATIENT
  Age: 87 Year
  Sex: Male
  Weight: 75.74 kg

DRUGS (3)
  1. PROCRIT [Suspect]
     Active Substance: ERYTHROPOIETIN
     Indication: NEPHROGENIC ANAEMIA
     Dosage: UNK
     Route: 065
  2. PROCRIT [Suspect]
     Active Substance: ERYTHROPOIETIN
     Dosage: UNK
     Route: 065
     Dates: start: 20180809
  3. IRON [Concomitant]
     Active Substance: IRON
     Dosage: UNK (BOLUS)

REACTIONS (10)
  - Fatigue [Unknown]
  - Haemoglobin decreased [Unknown]
  - Blood iron decreased [Unknown]
  - Impaired healing [Not Recovered/Not Resolved]
  - Asthenia [Not Recovered/Not Resolved]
  - Glomerular filtration rate decreased [Unknown]
  - Yellow skin [Not Recovered/Not Resolved]
  - Drug ineffective [Unknown]
  - Malaise [Unknown]
  - Appetite disorder [Unknown]

NARRATIVE: CASE EVENT DATE: 201810
